FAERS Safety Report 11731810 (Version 4)
Quarter: 2018Q2

REPORT INFORMATION
  Report Type: Spontaneous
  Country: CA (occurrence: CA)
  Receive Date: 20151113
  Receipt Date: 20180605
  Transmission Date: 20180711
  Serious: Yes (Other)
  Sender: FDA-Public Use
  Company Number: CA-ROCHE-1660245

PATIENT
  Sex: Male

DRUGS (4)
  1. XOLAIR [Suspect]
     Active Substance: OMALIZUMAB
     Route: 058
     Dates: start: 20171024
  2. XOLAIR [Suspect]
     Active Substance: OMALIZUMAB
     Route: 058
     Dates: start: 20151028
  3. VENTOLIN [Concomitant]
     Active Substance: ALBUTEROL SULFATE
     Indication: PRODUCT USED FOR UNKNOWN INDICATION
     Dosage: (3-4 PUFFS)
     Route: 065
  4. XOLAIR [Suspect]
     Active Substance: OMALIZUMAB
     Indication: ASTHMA
     Route: 058
     Dates: start: 20130603, end: 20140910

REACTIONS (8)
  - Drug ineffective [Unknown]
  - Limb injury [Unknown]
  - Soft tissue infection [Unknown]
  - Asthma [Not Recovered/Not Resolved]
  - Fatigue [Unknown]
  - Nasopharyngitis [Recovered/Resolved]
  - Alopecia [Unknown]
  - Spirometry abnormal [Unknown]
